FAERS Safety Report 23822628 (Version 1)
Quarter: 2024Q2

REPORT INFORMATION
  Report Type: Spontaneous
  Country: FR (occurrence: None)
  Receive Date: 20240506
  Receipt Date: 20240506
  Transmission Date: 20240716
  Serious: Yes (Hospitalization)
  Sender: FDA-Public Use
  Company Number: 2024A105847

PATIENT
  Age: 85 Year
  Sex: Male
  Weight: 67 kg

DRUGS (18)
  1. OMEPRAZOLE [Suspect]
     Active Substance: DONEPEZIL HYDROCHLORIDE\OMEPRAZOLE\OMEPRAZOLE MAGNESIUM
     Indication: Hiatus hernia
     Route: 048
     Dates: end: 20240322
  2. PREDNISONE [Suspect]
     Active Substance: PREDNISONE
     Dates: start: 202009, end: 202306
  3. METFORMIN HYDROCHLORIDE [Suspect]
     Active Substance: METFORMIN HYDROCHLORIDE
     Indication: Type 2 diabetes mellitus
     Dosage: EVERY 8 HOURS
     Route: 048
     Dates: end: 20240322
  4. FUROSEMIDE [Suspect]
     Active Substance: FUROSEMIDE
     Indication: Hypertension
     Route: 048
     Dates: end: 20240323
  5. FUROSEMIDE [Suspect]
     Active Substance: FUROSEMIDE
     Indication: Hypertension
     Route: 048
     Dates: start: 202009, end: 202306
  6. FUROSEMIDE [Suspect]
     Active Substance: FUROSEMIDE
     Indication: Hypertension
     Route: 048
     Dates: end: 20240329
  7. LERCANIDIPINE [Suspect]
     Active Substance: LERCANIDIPINE
     Dates: start: 202009, end: 202306
  8. LOSARTAN [Suspect]
     Active Substance: LOSARTAN
     Dates: start: 202009, end: 202306
  9. NEBIVOLOL [Suspect]
     Active Substance: NEBIVOLOL
     Dates: start: 202009, end: 202306
  10. ATORVASTATIN [Suspect]
     Active Substance: ATORVASTATIN
     Dates: start: 202009, end: 202306
  11. METFORMIN [Suspect]
     Active Substance: METFORMIN HYDROCHLORIDE
     Dates: start: 202009, end: 202306
  12. HUMALOG [Suspect]
     Active Substance: INSULIN LISPRO
     Dates: start: 202009, end: 202306
  13. CALCIUM CARBONATE [Suspect]
     Active Substance: CALCIUM CARBONATE
     Dates: start: 202009, end: 202306
  14. NITROGLYCERIN [Suspect]
     Active Substance: NITROGLYCERIN
     Dates: start: 202009, end: 202306
  15. ALLOPURINOL [Suspect]
     Active Substance: ALLOPURINOL
     Dates: start: 202009, end: 202306
  16. ALLOPURINOL [Suspect]
     Active Substance: ALLOPURINOL
     Dates: start: 20240326
  17. SPIRONOLACTONE [Suspect]
     Active Substance: SPIRONOLACTONE
     Dates: start: 202009, end: 202306
  18. ZOLPIDEM [Suspect]
     Active Substance: ZOLPIDEM TARTRATE
     Dates: start: 202009, end: 202306

REACTIONS (8)
  - Vomiting [Recovered/Resolved]
  - Diarrhoea [Recovered/Resolved]
  - Hypomagnesaemia [Recovered/Resolved]
  - Hypocalcaemia [Recovered/Resolved]
  - Folate deficiency [Unknown]
  - Anaemia [Unknown]
  - Respiratory alkalosis [Unknown]
  - Acetonaemia [Unknown]

NARRATIVE: CASE EVENT DATE: 20231201
